FAERS Safety Report 16816456 (Version 1)
Quarter: 2019Q3

REPORT INFORMATION
  Report Type: Spontaneous
  Country: US (occurrence: US)
  Receive Date: 20190917
  Receipt Date: 20190917
  Transmission Date: 20191005
  Serious: No
  Sender: FDA-Public Use
  Company Number: US-RECKITT BENCKISER HEALTHCARE INT LIMITED-RB-84605-2019

PATIENT
  Age: 76 Year
  Sex: Male

DRUGS (3)
  1. INSULIN                            /01223201/ [Concomitant]
     Indication: PRODUCT USED FOR UNKNOWN INDICATION
     Dosage: UNK
     Route: 065
  2. MUCINEX [Suspect]
     Active Substance: GUAIFENESIN
     Indication: INFUSION
     Dosage: 600 MILLIGRAM, SINGLE
     Route: 065
     Dates: start: 201904
  3. MUCINEX [Suspect]
     Active Substance: GUAIFENESIN
     Dosage: 600 MILLIGRAM, SINGLE
     Route: 065
     Dates: start: 20190423

REACTIONS (2)
  - Fatigue [Recovered/Resolved]
  - Dizziness [Recovered/Resolved]
